FAERS Safety Report 6636943-8 (Version None)
Quarter: 2010Q1

REPORT INFORMATION
  Report Type: 
  Country: None (occurrence: None)
  Receive Date: 20100316
  Receipt Date: 20100309
  Transmission Date: 20100710
  Serious: Yes (Hospitalization)
  Sender: FDA-Public Use
  Company Number: FR-BRISTOL-MYERS SQUIBB COMPANY-15015332

PATIENT
  Age: 57 Year
  Sex: Female

DRUGS (8)
  1. CETUXIMAB [Suspect]
     Indication: ANAL CANCER
     Route: 042
     Dates: start: 20090713, end: 20090824
  2. CISPLATIN [Suspect]
     Indication: ANAL CANCER
     Route: 042
     Dates: start: 20090727, end: 20090824
  3. FLUOROURACIL [Suspect]
     Indication: ANAL CANCER
     Route: 042
     Dates: start: 20090727, end: 20090828
  4. RADIATION THERAPY [Suspect]
     Indication: ANAL CANCER
     Dosage: 1 DF=1.8 GY: 23JUL2009-28AUG2009(26 DAYS) 2 GY: 14SEP09-25SEP09(11 DAYS)
     Dates: start: 20090723
  5. LYRICA [Concomitant]
     Indication: PAIN
     Route: 048
  6. OXYCONTIN [Concomitant]
     Indication: PAIN
     Route: 048
  7. OXYCODONE HCL [Concomitant]
     Indication: PAIN
     Route: 048
  8. PARACETAMOL [Concomitant]
     Indication: PAIN
     Route: 048

REACTIONS (1)
  - RADIATION NECROSIS [None]
